FAERS Safety Report 10527140 (Version 2)
Quarter: 2014Q4

REPORT INFORMATION
  Report Type: Spontaneous
  Country: RS (occurrence: RS)
  Receive Date: 20141020
  Receipt Date: 20141029
  Transmission Date: 20150528
  Serious: Yes (Other)
  Sender: FDA-Public Use
  Company Number: RS-SHIRE-RS201406848

PATIENT
  Age: 9 Year
  Sex: Male

DRUGS (3)
  1. ELAPRASE [Suspect]
     Active Substance: IDURSULFASE
     Indication: MUCOPOLYSACCHARIDOSIS II
     Dosage: 0.5 MG/KG, 1X/WEEK
     Route: 041
     Dates: start: 20140812
  2. CORTICOSTEROIDS [Concomitant]
     Active Substance: CORTICOSTEROID NOS
     Indication: PRODUCT USED FOR UNKNOWN INDICATION
     Dosage: UNK, UNKNOWN
     Route: 065
  3. OXYGEN. [Concomitant]
     Active Substance: OXYGEN
     Indication: PRODUCT USED FOR UNKNOWN INDICATION
     Dosage: UNK, UNKNOWN
     Route: 065

REACTIONS (7)
  - Pallor [Recovered/Resolved]
  - Heart rate increased [Recovered/Resolved]
  - Peripheral coldness [Recovered/Resolved]
  - Infusion related reaction [Recovered/Resolved]
  - Anxiety [Recovered/Resolved]
  - Tremor [Recovered/Resolved]
  - Hyperventilation [Recovered/Resolved]

NARRATIVE: CASE EVENT DATE: 20141008
